FAERS Safety Report 5339586-1 (Version None)
Quarter: 2007Q2

REPORT INFORMATION
  Report Type: 
  Country: None (occurrence: None)
  Receive Date: 20070529
  Receipt Date: 20070529
  Transmission Date: 20071010
  Serious: Yes (Life-Threatening)
  Sender: FDA-Public Use
  Company Number: None

PATIENT
  Age: 56 Year
  Sex: Female
  Weight: 63.5036 kg

DRUGS (2)
  1. DMPS ? ? [Suspect]
     Indication: METAL POISONING
     Dosage: ? 2 TIMES IN 6 WEEKS IV
     Route: 042
     Dates: start: 20070406, end: 20070406
  2. DMPS ? ? [Suspect]
     Indication: METAL POISONING
     Dosage: ? 2 TIMES IN 6 WEEKS IV
     Route: 042
     Dates: start: 20070522, end: 20070522

REACTIONS (21)
  - ABDOMINAL PAIN UPPER [None]
  - ASTHENIA [None]
  - BLOOD GLUCOSE DECREASED [None]
  - BLOOD PRESSURE DECREASED [None]
  - DIZZINESS [None]
  - DRUG HYPERSENSITIVITY [None]
  - FATIGUE [None]
  - FEELING ABNORMAL [None]
  - HEADACHE [None]
  - INFUSION RELATED REACTION [None]
  - INSOMNIA [None]
  - MALAISE [None]
  - METAL POISONING [None]
  - MOVEMENT DISORDER [None]
  - NAUSEA [None]
  - NECK PAIN [None]
  - PARAESTHESIA [None]
  - SHOCK [None]
  - TINNITUS [None]
  - VISION BLURRED [None]
  - VOMITING [None]
